FAERS Safety Report 18049239 (Version 2)
Quarter: 2020Q3

REPORT INFORMATION
  Report Type: Report from Study
  Country: AR (occurrence: AR)
  Receive Date: 20200721
  Receipt Date: 20200806
  Transmission Date: 20201103
  Serious: Yes (Hospitalization, Other)
  Sender: FDA-Public Use
  Company Number: NVSC2020AR201428

PATIENT
  Age: 79 Year
  Sex: Male
  Weight: 103 kg

DRUGS (5)
  1. DIOVAN [Suspect]
     Active Substance: VALSARTAN
     Indication: CARDIAC DISORDER
     Dosage: 80 MG, QD
     Route: 065
     Dates: end: 20190402
  2. ALLOPURINOL. [Concomitant]
     Active Substance: ALLOPURINOL
     Indication: PRODUCT USED FOR UNKNOWN INDICATION
     Dosage: 300 MG, QD (AT NIGHT)
     Route: 065
  3. TAMSULOSIN [Concomitant]
     Active Substance: TAMSULOSIN
     Indication: POLLAKIURIA
     Dosage: 0.4 MG
     Route: 065
  4. DIOVAN [Suspect]
     Active Substance: VALSARTAN
     Indication: HYPERTENSION
     Dosage: 40 MG, BID (HALF OF 80 MG AT MORNING AND AT NIGHT)
     Route: 065
     Dates: start: 20190402
  5. OMEPRAZOLE. [Concomitant]
     Active Substance: OMEPRAZOLE
     Indication: PRODUCT USED FOR UNKNOWN INDICATION
     Dosage: 1 DF
     Route: 065

REACTIONS (12)
  - Amnesia [Recovered/Resolved]
  - Wrong technique in product usage process [Unknown]
  - Arrhythmia [Recovered/Resolved]
  - Atrial flutter [Unknown]
  - Impaired healing [Unknown]
  - Coagulopathy [Recovering/Resolving]
  - Renal impairment [Unknown]
  - Pain [Recovered/Resolved]
  - Back injury [Unknown]
  - Nephrolithiasis [Unknown]
  - Fall [Unknown]
  - Fatigue [Recovered/Resolved]

NARRATIVE: CASE EVENT DATE: 201903
